FAERS Safety Report 9998046 (Version 1)
Quarter: 2014Q1

REPORT INFORMATION
  Report Type: Spontaneous
  Country: IN (occurrence: IN)
  Receive Date: 20140311
  Receipt Date: 20140311
  Transmission Date: 20141002
  Serious: Yes (Death)
  Sender: FDA-Public Use
  Company Number: PHHY2014IN029241

PATIENT
  Sex: Male

DRUGS (2)
  1. CERTICAN [Suspect]
     Dosage: 0.5 MG, BID
     Route: 048
     Dates: start: 20140221
  2. PANGRAF [Concomitant]
     Dosage: 1000 MG, PER DAY
     Route: 048

REACTIONS (1)
  - Death [Fatal]
